FAERS Safety Report 23942117 (Version 2)
Quarter: 2024Q4

REPORT INFORMATION
  Report Type: Spontaneous
  Country: US (occurrence: US)
  Receive Date: 20240605
  Receipt Date: 20241111
  Transmission Date: 20250115
  Serious: No
  Sender: CALLIDITAS THERAPEUTICS AB
  Company Number: US-Calliditas-2024CAL00873

PATIENT
  Age: 37 Year
  Sex: Female
  Weight: 47.5 kg

DRUGS (3)
  1. TARPEYO [Suspect]
     Active Substance: BUDESONIDE
     Indication: Haematuria
     Route: 048
     Dates: start: 20240209
  2. LISINOPRIL [Concomitant]
     Active Substance: LISINOPRIL
  3. FILSPARI [Concomitant]
     Active Substance: SPARSENTAN

REACTIONS (1)
  - Blood pressure increased [Not Recovered/Not Resolved]
